FAERS Safety Report 5137631-X (Version None)
Quarter: 2006Q4

REPORT INFORMATION
  Report Type: 
  Country: None (occurrence: None)
  Receive Date: 20061030
  Receipt Date: 20061019
  Transmission Date: 20070319
  Serious: Yes (Hospitalization)
  Sender: FDA-Public Use
  Company Number: JP-JNJFOC-20061004914

PATIENT
  Age: 55 Year
  Sex: Female

DRUGS (9)
  1. ITRIZOLE [Suspect]
     Indication: NAIL TINEA
     Route: 048
     Dates: start: 20061006, end: 20061007
  2. CONIEL [Concomitant]
     Indication: HYPERTENSION
     Route: 048
  3. URSO [Concomitant]
     Route: 048
  4. GLYCYRON [Concomitant]
     Route: 048
  5. BLOPRESS [Concomitant]
     Route: 048
  6. CARDENALIN [Concomitant]
     Route: 048
  7. ALDACTONE [Concomitant]
     Route: 048
  8. WYTENS [Concomitant]
     Route: 048
  9. BETA BLOCKING AGENT [Concomitant]
     Route: 065

REACTIONS (3)
  - HYPOTENSION [None]
  - OEDEMA [None]
  - SHOCK [None]
